FAERS Safety Report 12227866 (Version 2)
Quarter: 2016Q2

REPORT INFORMATION
  Report Type: Spontaneous
  Country: US (occurrence: US)
  Receive Date: 20160401
  Receipt Date: 20160404
  Transmission Date: 20160815
  Serious: Yes (Hospitalization)
  Sender: FDA-Public Use
  Company Number: US-BEH-2016060548

PATIENT
  Sex: Female
  Weight: 95 kg

DRUGS (18)
  1. COZAAR [Concomitant]
     Active Substance: LOSARTAN POTASSIUM
  2. DIPHENHYDRAMINE. [Concomitant]
     Active Substance: DIPHENHYDRAMINE
  3. EPIPEN [Concomitant]
     Active Substance: EPINEPHRINE
  4. CYMBALTA [Concomitant]
     Active Substance: DULOXETINE HYDROCHLORIDE
  5. LYRICA [Concomitant]
     Active Substance: PREGABALIN
  6. ZETIA [Concomitant]
     Active Substance: EZETIMIBE
  7. RANITIDINE. [Concomitant]
     Active Substance: RANITIDINE
  8. L-M-X [Concomitant]
  9. TRAZODONE [Concomitant]
     Active Substance: TRAZODONE HYDROCHLORIDE
  10. HIZENTRA [Suspect]
     Active Substance: HUMAN IMMUNOGLOBULIN G
     Indication: HYPOGAMMAGLOBULINAEMIA
     Route: 058
  11. ACETAMINOPHEN. [Concomitant]
     Active Substance: ACETAMINOPHEN
  12. SYNTHROID [Concomitant]
     Active Substance: LEVOTHYROXINE SODIUM
  13. SINGULAIR [Concomitant]
     Active Substance: MONTELUKAST SODIUM
  14. FLONASE [Concomitant]
     Active Substance: FLUTICASONE PROPIONATE
  15. GLIMEPIRIDE. [Concomitant]
     Active Substance: GLIMEPIRIDE
  16. METFORMIN [Concomitant]
     Active Substance: METFORMIN HYDROCHLORIDE
  17. PROAIR HFA [Concomitant]
     Active Substance: ALBUTEROL SULFATE
  18. LEVAQUIN [Concomitant]
     Active Substance: LEVOFLOXACIN

REACTIONS (2)
  - Internal haemorrhage [Unknown]
  - Pneumonia [Unknown]
